FAERS Safety Report 9710119 (Version 7)
Quarter: 2014Q1

REPORT INFORMATION
  Report Type: Report from Study
  Country: US (occurrence: US)
  Receive Date: 20131126
  Receipt Date: 20140328
  Transmission Date: 20141002
  Serious: Yes (Hospitalization)
  Sender: FDA-Public Use
  Company Number: PHEH2013US021313

PATIENT
  Age: 35 Year
  Sex: Female
  Weight: 63.95 kg

DRUGS (4)
  1. GILENYA [Suspect]
     Indication: MULTIPLE SCLEROSIS
     Dosage: 0.5 MG, QD
     Route: 048
     Dates: start: 20131011
  2. PAXIL//PAROXETINE HYDROCHLORIDE [Concomitant]
  3. VICODIN [Concomitant]
  4. APO PRIMIDONE [Concomitant]

REACTIONS (15)
  - Concussion [Unknown]
  - Anxiety [Unknown]
  - Multiple sclerosis relapse [Not Recovered/Not Resolved]
  - Fall [Not Recovered/Not Resolved]
  - Clumsiness [Not Recovered/Not Resolved]
  - Muscular weakness [Not Recovered/Not Resolved]
  - Hypoaesthesia [Unknown]
  - Contusion [Not Recovered/Not Resolved]
  - Arthralgia [Not Recovered/Not Resolved]
  - Back pain [Not Recovered/Not Resolved]
  - Heart rate decreased [Unknown]
  - Paraesthesia [Unknown]
  - Pruritus [Unknown]
  - Memory impairment [Not Recovered/Not Resolved]
  - Drug ineffective [Unknown]
